FAERS Safety Report 17898211 (Version 1)
Quarter: 2020Q3

REPORT INFORMATION
  Report Type: Spontaneous
  Country: CN (occurrence: CN)
  Receive Date: 20200616
  Receipt Date: 20200616
  Transmission Date: 20201104
  Serious: Yes (Other)
  Sender: FDA-Public Use
  Company Number: CN-ROCHE-2622141

PATIENT
  Age: 50 Year
  Sex: Male

DRUGS (12)
  1. AVASTIN [Suspect]
     Active Substance: BEVACIZUMAB
     Indication: LUNG ADENOCARCINOMA
     Dosage: 5 CYCLES
     Route: 042
     Dates: start: 20170908, end: 20180301
  2. PEMETREXED. [Concomitant]
     Active Substance: PEMETREXED
     Indication: BONE NEOPLASM
     Dosage: 6 CYCLES
     Route: 042
     Dates: start: 20180322, end: 201807
  3. CARBOPLATIN. [Concomitant]
     Active Substance: CARBOPLATIN
     Indication: LUNG ADENOCARCINOMA
     Route: 042
     Dates: start: 20170908, end: 20180301
  4. PEMETREXED. [Concomitant]
     Active Substance: PEMETREXED
     Indication: LUNG ADENOCARCINOMA
     Dosage: 5 CYCLES
     Route: 042
     Dates: start: 20170908, end: 20180301
  5. MANNITOL. [Concomitant]
     Active Substance: MANNITOL
     Indication: BRAIN OEDEMA
     Route: 065
     Dates: start: 2018
  6. AVASTIN [Suspect]
     Active Substance: BEVACIZUMAB
     Indication: BONE NEOPLASM
     Dosage: 6 CYCLES
     Route: 042
     Dates: start: 20180322, end: 201807
  7. ALECTINIB. [Suspect]
     Active Substance: ALECTINIB
     Indication: BONE NEOPLASM
  8. CRIZOTINIB [Concomitant]
     Active Substance: CRIZOTINIB
     Indication: BONE NEOPLASM
  9. DEXAMETHASONE. [Concomitant]
     Active Substance: DEXAMETHASONE
     Indication: BRAIN OEDEMA
     Route: 065
     Dates: start: 2018
  10. CARBOPLATIN. [Concomitant]
     Active Substance: CARBOPLATIN
     Indication: BONE NEOPLASM
  11. ALECTINIB. [Suspect]
     Active Substance: ALECTINIB
     Indication: LUNG ADENOCARCINOMA
     Route: 065
     Dates: start: 20180909
  12. CRIZOTINIB [Concomitant]
     Active Substance: CRIZOTINIB
     Indication: LUNG ADENOCARCINOMA
     Route: 048
     Dates: start: 20180725

REACTIONS (2)
  - Epilepsy [Unknown]
  - Hepatic failure [Unknown]

NARRATIVE: CASE EVENT DATE: 201809
